FAERS Safety Report 9270485 (Version 5)
Quarter: 2014Q2

REPORT INFORMATION
  Report Type: Spontaneous
  Country: US (occurrence: US)
  Receive Date: 20130503
  Receipt Date: 20140430
  Transmission Date: 20141212
  Serious: Yes (Death, Hospitalization, Other)
  Sender: FDA-Public Use
  Company Number: US-009507513-1204USA00997

PATIENT
  Sex: Female

DRUGS (6)
  1. FOSAMAX [Suspect]
     Indication: OSTEOPOROSIS
     Dosage: 70 MG, UNK
     Route: 048
     Dates: start: 20020619, end: 20080310
  2. MIACALCIN [Concomitant]
     Indication: OSTEOPOROSIS
     Dosage: UNK
     Dates: start: 2010, end: 2012
  3. CALCIUM (UNSPECIFIED) [Concomitant]
     Dosage: UNK
     Dates: start: 1987, end: 2012
  4. COREG [Concomitant]
     Indication: HYPERTENSION
     Dosage: UNK
     Dates: start: 1987, end: 2012
  5. ZESTRIL [Concomitant]
     Indication: HYPERTENSION
     Dosage: UNK
     Dates: start: 1987, end: 2012
  6. TAZTIA XT [Concomitant]
     Indication: HYPERTENSION
     Dosage: UNK
     Dates: start: 2000, end: 2012

REACTIONS (27)
  - Femur fracture [Unknown]
  - Open reduction of fracture [Unknown]
  - Knee arthroplasty [Unknown]
  - Bone graft [Unknown]
  - Large intestinal polypectomy [Unknown]
  - Hip arthroplasty [Unknown]
  - Knee arthroplasty [Unknown]
  - Hip arthroplasty [Unknown]
  - Hip arthroplasty [Unknown]
  - Ischaemia [Unknown]
  - Toe amputation [Unknown]
  - Asthenia [Fatal]
  - Myocardial infarction [Unknown]
  - Femur fracture [Unknown]
  - Low turnover osteopathy [Unknown]
  - Upper limb fracture [Unknown]
  - Anxiety [Unknown]
  - Peripheral vascular disorder [Unknown]
  - Hepatitis C [Unknown]
  - Blood potassium increased [Recovering/Resolving]
  - Osteoarthritis [Unknown]
  - Osteopenia [Unknown]
  - Ulna fracture [Unknown]
  - Radius fracture [Unknown]
  - Fracture nonunion [Unknown]
  - Pubis fracture [Unknown]
  - Calcification of muscle [Unknown]
